FAERS Safety Report 6237509-4 (Version None)
Quarter: 2009Q2

REPORT INFORMATION
  Report Type: 
  Country: None (occurrence: None)
  Receive Date: 20090619
  Receipt Date: 20090305
  Transmission Date: 20091009
  Serious: Yes (Hospitalization)
  Sender: FDA-Public Use
  Company Number: US-AMGEN-QUU335175

PATIENT
  Sex: Female
  Weight: 59.4 kg

DRUGS (14)
  1. ARANESP [Suspect]
     Indication: RENAL FAILURE CHRONIC
     Route: 058
     Dates: start: 20061024, end: 20090224
  2. HYDRODIURIL [Concomitant]
  3. LOTREL [Concomitant]
  4. CALCIUM [Concomitant]
  5. DETROL [Concomitant]
  6. NAPROSYN [Concomitant]
  7. PRILOSEC [Concomitant]
  8. NORVASC [Concomitant]
  9. NEPHRO-CAPS [Concomitant]
  10. CALCIUM WITH VITAMIN D [Concomitant]
  11. LASIX [Concomitant]
  12. DARVOCET-N 100 [Concomitant]
  13. BUMEX [Concomitant]
     Dates: start: 20090201
  14. LOPRESSOR [Concomitant]
     Dates: start: 20090201

REACTIONS (1)
  - MYOCARDIAL INFARCTION [None]
